FAERS Safety Report 17935097 (Version 4)
Quarter: 2022Q2

REPORT INFORMATION
  Report Type: Spontaneous
  Country: US (occurrence: US)
  Receive Date: 20200624
  Receipt Date: 20220607
  Transmission Date: 20220721
  Serious: Yes (Other)
  Sender: FDA-Public Use
  Company Number: US-PFIZER INC-2020242860

PATIENT
  Age: 79 Year

DRUGS (1)
  1. LORBRENA [Suspect]
     Active Substance: LORLATINIB
     Indication: Lung cancer metastatic
     Dosage: 100 MG

REACTIONS (2)
  - Deafness [Unknown]
  - Dysphonia [Unknown]

NARRATIVE: CASE EVENT DATE: 20200622
